FAERS Safety Report 4784836-3 (Version None)
Quarter: 2005Q3

REPORT INFORMATION
  Report Type: 
  Country: None (occurrence: None)
  Receive Date: 20050929
  Receipt Date: 20050929
  Transmission Date: 20060218
  Serious: No
  Sender: FDA-Public Use
  Company Number: None

PATIENT
  Age: 47 Year
  Sex: Female
  Weight: 131.5431 kg

DRUGS (2)
  1. FERROUS SULFATE TAB [Suspect]
     Indication: ANAEMIA
     Dosage: ORAL
     Route: 048
  2. FERROUS SULFATE TAB [Suspect]
     Indication: GASTRITIS
     Dosage: ORAL
     Route: 048

REACTIONS (2)
  - ABDOMINAL DISCOMFORT [None]
  - DRUG INTOLERANCE [None]
